FAERS Safety Report 10456488 (Version 1)
Quarter: 2014Q3

REPORT INFORMATION
  Report Type: Spontaneous
  Country: US (occurrence: None)
  Receive Date: 20140915
  Receipt Date: 20140915
  Transmission Date: 20150326
  Serious: No
  Sender: FDA-Public Use
  Company Number: None

PATIENT
  Age: 56 Year
  Sex: Female
  Weight: 108 kg

DRUGS (1)
  1. BUPIVACAINE [Suspect]
     Active Substance: BUPIVACAINE
     Indication: EPIDURAL INJECTION
     Dates: start: 20140909

REACTIONS (2)
  - No therapeutic response [None]
  - Product quality issue [None]

NARRATIVE: CASE EVENT DATE: 20140909
